FAERS Safety Report 8011056-1 (Version None)
Quarter: 2011Q4

REPORT INFORMATION
  Report Type: 
  Country: None (occurrence: None)
  Receive Date: 20111228
  Receipt Date: 20111219
  Transmission Date: 20120403
  Serious: Yes (Other)
  Sender: FDA-Public Use
  Company Number: US-ELI_LILLY_AND_COMPANY-US201111003450

PATIENT
  Sex: Female
  Weight: 59.864 kg

DRUGS (1)
  1. CYMBALTA [Suspect]
     Dosage: 60 MG, QD
     Dates: start: 20061211

REACTIONS (2)
  - ARTHRALGIA [None]
  - HEPATOCELLULAR INJURY [None]
